FAERS Safety Report 7769575-9 (Version None)
Quarter: 2011Q3

REPORT INFORMATION
  Report Type: 
  Country: None (occurrence: None)
  Receive Date: 20110922
  Receipt Date: 20100517
  Transmission Date: 20111222
  Serious: No
  Sender: FDA-Public Use
  Company Number: US-ASTRAZENECA-2010SE45064

PATIENT
  Age: 61 Year
  Sex: Female

DRUGS (5)
  1. SEROQUEL [Suspect]
     Dosage: TAKE 2 TO 3 TABLET BY MOUTH AT BEDTIME
     Route: 048
     Dates: start: 20031003
  2. CARDIZEM [Concomitant]
     Route: 048
     Dates: start: 20030922
  3. CLONIDINE [Concomitant]
     Route: 048
     Dates: start: 20030710
  4. LIPITOR [Concomitant]
     Route: 048
     Dates: start: 20030918
  5. CLARINEX [Concomitant]
     Route: 048
     Dates: start: 20030403

REACTIONS (3)
  - DIABETES MELLITUS [None]
  - OSTEOPOROSIS [None]
  - HYPERTENSION [None]
